FAERS Safety Report 5232581-2 (Version None)
Quarter: 2007Q1

REPORT INFORMATION
  Report Type: 
  Country: None (occurrence: None)
  Receive Date: 20070207
  Receipt Date: 20070127
  Transmission Date: 20070707
  Serious: Yes (Death)
  Sender: FDA-Public Use
  Company Number: IT-ROCHE-480347

PATIENT
  Age: 66 Year
  Sex: Female

DRUGS (3)
  1. PEGASYS [Suspect]
     Indication: HEPATITIS C
     Dosage: FORM: VIAL.
     Route: 058
     Dates: start: 20060205, end: 20060510
  2. COPEGUS [Suspect]
     Indication: HEPATITIS C
     Route: 048
     Dates: start: 20060205, end: 20060510
  3. EPREX [Suspect]
     Indication: HEPATITIS C
     Dosage: FORM: VIAL. 20000 UNITS PER WEEK.
     Route: 058
     Dates: start: 20060323, end: 20060510

REACTIONS (2)
  - ANEURYSM RUPTURED [None]
  - ANGINA PECTORIS [None]
